FAERS Safety Report 8160777-9 (Version None)
Quarter: 2012Q1

REPORT INFORMATION
  Report Type: 
  Country: None (occurrence: None)
  Receive Date: 20120223
  Receipt Date: 20120214
  Transmission Date: 20120608
  Serious: Yes (Hospitalization, Other)
  Sender: FDA-Public Use
  Company Number: PHHY2009CA56003

PATIENT
  Sex: Female

DRUGS (2)
  1. SANDOSTATIN LAR [Suspect]
     Dosage: 30 MG, QMO
     Route: 030
     Dates: start: 20100524
  2. SANDOSTATIN LAR [Suspect]
     Indication: NEUROENDOCRINE TUMOUR
     Dosage: 30 MG EVERY 4 WEEKS
     Route: 030
     Dates: start: 20091211

REACTIONS (15)
  - BLOOD POTASSIUM DECREASED [None]
  - FLUSHING [None]
  - DECREASED APPETITE [None]
  - TYPE 2 DIABETES MELLITUS [None]
  - HYPERHIDROSIS [None]
  - NAUSEA [None]
  - HEADACHE [None]
  - URINE ABNORMALITY [None]
  - ABDOMINAL PAIN [None]
  - OEDEMA PERIPHERAL [None]
  - CHROMATURIA [None]
  - ABDOMINAL PAIN UPPER [None]
  - SKIN BURNING SENSATION [None]
  - URINARY TRACT INFECTION [None]
  - RASH PRURITIC [None]
